FAERS Safety Report 10178011 (Version 4)
Quarter: 2014Q3

REPORT INFORMATION
  Report Type: Spontaneous
  Country: US (occurrence: US)
  Receive Date: 20140517
  Receipt Date: 20140901
  Transmission Date: 20150326
  Serious: No
  Sender: FDA-Public Use
  Company Number: US-009507513-1405USA005834

PATIENT
  Sex: Female
  Weight: 100.23 kg

DRUGS (3)
  1. SINGULAIR [Concomitant]
     Active Substance: MONTELUKAST SODIUM
     Route: 048
  2. DULERA [Suspect]
     Active Substance: FORMOTEROL FUMARATE DIHYDRATE\MOMETASONE FUROATE
     Indication: ASTHMA
     Dosage: 2 PUFFS, TWICE DAILY
     Route: 055
     Dates: start: 20140328
  3. PROVENTIL [Concomitant]
     Active Substance: ALBUTEROL
     Route: 055

REACTIONS (5)
  - Product quality issue [Unknown]
  - Abdominal operation [Unknown]
  - Dyspnoea [Recovered/Resolved]
  - Chest discomfort [Recovering/Resolving]
  - Asthma [Recovering/Resolving]

NARRATIVE: CASE EVENT DATE: 2014
